FAERS Safety Report 17014437 (Version 2)
Quarter: 2020Q1

REPORT INFORMATION
  Report Type: Spontaneous
  Country: GB (occurrence: GB)
  Receive Date: 20191111
  Receipt Date: 20200310
  Transmission Date: 20200409
  Serious: Yes (Hospitalization)
  Sender: FDA-Public Use
  Company Number: GB-TEVA-2019-GB-1135717

PATIENT
  Age: 87 Year
  Sex: Female

DRUGS (8)
  1. SERTRALINE [Concomitant]
     Active Substance: SERTRALINE HYDROCHLORIDE
     Dosage: 100 MILLIGRAM DAILY; IN THE MORNING,
     Route: 048
  2. LISINOPRIL. [Concomitant]
     Active Substance: LISINOPRIL
     Dosage: 5 MILLIGRAM DAILY; IN THE MORNING,
     Route: 048
  3. NITROFURANTOIN. [Suspect]
     Active Substance: NITROFURANTOIN
     Indication: URINARY TRACT INFECTION
     Dosage: 200MG/ DAY/ 3 DAYS
     Route: 048
     Dates: start: 20190906, end: 20190909
  4. ZEROBASE [Concomitant]
     Active Substance: MINERAL OIL\PARAFFIN
  5. OMEPRAZOLE. [Concomitant]
     Active Substance: OMEPRAZOLE
     Dosage: IN THE MORNING,
     Route: 048
  6. SALBUTAMOL [Concomitant]
     Active Substance: ALBUTEROL
     Dosage: PUFFS,
     Route: 050
  7. BUDESONIDE. [Concomitant]
     Active Substance: BUDESONIDE
     Dosage: 200MCG DRY POWDER INHALER
     Route: 050
  8. ADCAL-D3 [Concomitant]
     Active Substance: CALCIUM CARBONATE\CHOLECALCIFEROL
     Dosage: 750MG/200UNIT,
     Route: 048

REACTIONS (4)
  - Delirium [Unknown]
  - Sepsis [Unknown]
  - Treatment failure [Recovered/Resolved]
  - Pyrexia [Unknown]
